FAERS Safety Report 15962917 (Version 2)
Quarter: 2020Q4

REPORT INFORMATION
  Report Type: Spontaneous
  Country: NL (occurrence: NL)
  Receive Date: 20190214
  Receipt Date: 20201204
  Transmission Date: 20210113
  Serious: Yes (Other)
  Sender: FDA-Public Use
  Company Number: NL-B.I. PHARMACEUTICALS,INC./RIDGEFIELD-2019-12-000490

PATIENT
  Age: 67 Year
  Sex: Female

DRUGS (5)
  1. PERSANTIN [Suspect]
     Active Substance: DIPYRIDAMOLE
     Indication: VASCULITIS
  2. ACICLOVIR CLARIS [Suspect]
     Active Substance: ACYCLOVIR SODIUM
     Indication: MENINGOENCEPHALITIS HERPETIC
  3. CARBASALATE CALCIUM [Concomitant]
     Active Substance: CARBASPIRIN CALCIUM
     Indication: CEREBROVASCULAR ACCIDENT
     Route: 065
  4. PERSANTIN [Suspect]
     Active Substance: DIPYRIDAMOLE
     Indication: MENINGOENCEPHALITIS HERPETIC
  5. ACICLOVIR CLARIS [Suspect]
     Active Substance: ACYCLOVIR SODIUM
     Indication: VASCULITIS
     Dosage: CONCENTRATE FOR SOLUTION FOR INFUSION; 25 MG/ML, CONCENTRAAT VOOR OPLOSSING VOOR INTRAVENEUZ

REACTIONS (1)
  - Drug ineffective [Unknown]
